FAERS Safety Report 15538482 (Version 5)
Quarter: 2020Q1

REPORT INFORMATION
  Report Type: Spontaneous
  Country: DE (occurrence: DE)
  Receive Date: 20181022
  Receipt Date: 20200225
  Transmission Date: 20200409
  Serious: Yes (Hospitalization)
  Sender: FDA-Public Use
  Company Number: DE-MYLANLABS-2018M1078800

PATIENT
  Age: 62 Year
  Sex: Female
  Weight: 45 kg

DRUGS (81)
  1. URSOFALK [Interacting]
     Active Substance: URSODIOL
     Indication: PRODUCT USED FOR UNKNOWN INDICATION
     Dosage: 500 MG, BID, (1-0-1-0)
     Route: 048
  2. SPIRONOLACTON [Interacting]
     Active Substance: SPIRONOLACTONE
     Dosage: 200 MG, BID
     Route: 048
  3. VIANI [Interacting]
     Active Substance: FLUTICASONE PROPIONATE\SALMETEROL XINAFOATE
     Indication: PRODUCT USED FOR UNKNOWN INDICATION
     Dosage: UNK, BID, 50|500 MUG,(1-0-1-0)
     Route: 055
  4. RAPAMUNE [Interacting]
     Active Substance: SIROLIMUS
     Dosage: UNK
     Route: 048
  5. LEVOPAR [Interacting]
     Active Substance: BENSERAZIDE\LEVODOPA
     Dosage: 100 MG, QD
     Route: 048
  6. MAGNESIUM VERLA                    /00648601/ [Suspect]
     Active Substance: MAGNESIUM
     Dosage: 2 OT, QD
     Route: 048
  7. NOVALGIN (METAMIZOLE SODIUM) [Interacting]
     Active Substance: METAMIZOLE SODIUM
     Dosage: 30 OT, TID (30 TROPFEN, 1-1-1-0)
     Route: 048
  8. PANTOPRAZOLE [Interacting]
     Active Substance: PANTOPRAZOLE
     Indication: PRODUCT USED FOR UNKNOWN INDICATION
     Dosage: 40 MG,QD (1-0-0-0)
     Route: 048
  9. NOVALGIN                           /00169801/ [Interacting]
     Active Substance: ACETAMINOPHEN\CAFFEINE\PROPYPHENAZONE
     Indication: PRODUCT USED FOR UNKNOWN INDICATION
     Dosage: 30 OT, TID (30 TROPFEN, 1-1-1-0)
     Route: 048
  10. SPIRONOLACTON [Interacting]
     Active Substance: SPIRONOLACTONE
     Dosage: 100 MG, BID (2-0-0-0)
     Route: 048
  11. VIANI [Interacting]
     Active Substance: FLUTICASONE PROPIONATE\SALMETEROL XINAFOATE
     Dosage: 50|500 ?G,( 1-0-1-0)
     Route: 048
  12. FUROSEMID                          /00032601/ [Interacting]
     Active Substance: FUROSEMIDE
     Indication: PRODUCT USED FOR UNKNOWN INDICATION
     Dosage: 40 MG, UNK (4-0-0-0)
     Route: 048
  13. FUROSEMID                          /00032601/ [Interacting]
     Active Substance: FUROSEMIDE
     Dosage: 40 MILLIGRAM, QD
     Route: 048
  14. VIGANTOLETTEN [Interacting]
     Active Substance: CHOLECALCIFEROL
     Indication: PRODUCT USED FOR UNKNOWN INDICATION
     Dosage: 100 OT, QD (100 IE, 1-0-0-0)
     Route: 048
  15. LACTULOSE AL [Interacting]
     Active Substance: LACTULOSE
     Dosage: 1 DF, QD, 1 MEASURING CUP
     Route: 048
  16. KALINOR                            /00031402/ [Interacting]
     Active Substance: POTASSIUM CHLORIDE
     Indication: PRODUCT USED FOR UNKNOWN INDICATION
     Dosage: 100 MG, QD, (1-0-0-0)
     Route: 048
  17. SPIRIVA [Interacting]
     Active Substance: TIOTROPIUM BROMIDE MONOHYDRATE
     Dosage: 18 UG, BID
     Route: 055
  18. RAPAMUNE [Interacting]
     Active Substance: SIROLIMUS
     Indication: PRODUCT USED FOR UNKNOWN INDICATION
     Dosage: 1 MG, QD (1-0-0-0)
     Route: 048
  19. PANTOZOL [Interacting]
     Active Substance: PANTOPRAZOLE SODIUM
     Indication: PRODUCT USED FOR UNKNOWN INDICATION
     Dosage: 40 MG, QD, (1-0-0-0)
     Route: 048
  20. MUCOSOLVAN [Interacting]
     Active Substance: AMBROXOL HYDROCHLORIDE
     Dosage: REQUIREMENT
     Route: 048
  21. PARACETAMOL W/PENTAZOCINE          /00642701/ [Suspect]
     Active Substance: ACETAMINOPHEN\PENTAZOCINE HYDROCHLORIDE
     Dosage: 30 GTT DROPS, TID
     Route: 048
  22. MAGNESIUM [Interacting]
     Active Substance: MAGNESIUM
     Indication: PRODUCT USED FOR UNKNOWN INDICATION
     Dosage: UNK UNK,BID (2-0-0-0)
     Route: 048
  23. MAGNESIUM OXIDE. [Interacting]
     Active Substance: MAGNESIUM OXIDE
     Indication: PRODUCT USED FOR UNKNOWN INDICATION
     Dosage: UNK, BID,  (2-0-0-0)
     Route: 048
  24. NOVALGIN                           /00169801/ [Interacting]
     Active Substance: ACETAMINOPHEN\CAFFEINE\PROPYPHENAZONE
     Dosage: 1 DOSAGE FORM, QD
     Route: 048
  25. NOVALGIN                           /00169801/ [Interacting]
     Active Substance: ACETAMINOPHEN\CAFFEINE\PROPYPHENAZONE
     Dosage: 90 DOSAGE FORM, QD (90 DF, QD, UNIT DOSE: 30 DROPS)
     Route: 048
  26. SPIRONOLACTON [Interacting]
     Active Substance: SPIRONOLACTONE
     Dosage: 200 MG, BID
     Route: 048
  27. FUROSEMID                          /00032601/ [Interacting]
     Active Substance: FUROSEMIDE
     Dosage: 40 MG,QID
     Route: 048
  28. FUROSEMID                          /00032601/ [Interacting]
     Active Substance: FUROSEMIDE
     Dosage: 40 MG,QID
     Route: 048
  29. EZETROL [Interacting]
     Active Substance: EZETIMIBE
     Indication: PRODUCT USED FOR UNKNOWN INDICATION
     Dosage: 10 MG, QD (1-0-0-0)
     Route: 048
  30. SPIRIVA [Interacting]
     Active Substance: TIOTROPIUM BROMIDE MONOHYDRATE
     Indication: PRODUCT USED FOR UNKNOWN INDICATION
     Dosage: 18 UG, BID (1-0-1-0) (36 UG, QD, 18 UG, BID (1-0-1-0))
     Route: 055
  31. ESIDRIX [Interacting]
     Active Substance: HYDROCHLOROTHIAZIDE
     Indication: PRODUCT USED FOR UNKNOWN INDICATION
     Dosage: 25 MG, QD,  (1-0-0-0)
     Route: 048
  32. IMUREK                             /00001501/ [Interacting]
     Active Substance: AZATHIOPRINE
     Indication: PRODUCT USED FOR UNKNOWN INDICATION
     Dosage: 50 MILLIGRAM, QD
     Route: 048
  33. MAGNESIUM VERLA                    /00648601/ [Suspect]
     Active Substance: MAGNESIUM
     Indication: PRODUCT USED FOR UNKNOWN INDICATION
     Dosage: 1 DOSAGE FORM, QD
     Route: 048
  34. MAGNESIUM VERLA                    /00648601/ [Suspect]
     Active Substance: MAGNESIUM
     Dosage: 2 DF, QD
     Route: 048
  35. NOVALGIN (METAMIZOLE SODIUM) [Interacting]
     Active Substance: METAMIZOLE SODIUM
     Dosage: UNK UNK, TID (30 TROPFEN, 1-1-1-0)
     Route: 048
  36. MAGNESIUM VERLA                    /02089401/ [Interacting]
     Active Substance: MAGNESIUM
     Indication: PRODUCT USED FOR UNKNOWN INDICATION
     Dosage: 2 OT, QD (2-0-0-0)
     Route: 048
  37. URSOFALK [Interacting]
     Active Substance: URSODIOL
     Dosage: 500 MG, Q12H
     Route: 048
  38. SPIRONOLACTON [Interacting]
     Active Substance: SPIRONOLACTONE
     Dosage: 200 MILLIGRAM, QD(200 MG, QD,100 MG, BID (2-0-0-0))
     Route: 048
  39. MUCOSOLVAN [Interacting]
     Active Substance: AMBROXOL HYDROCHLORIDE
     Dosage: UNK (REQUIREMENT, BEDARFAS NECESSARY) (UNK [30 DROP
     Route: 048
  40. IMUREK                             /00001501/ [Interacting]
     Active Substance: AZATHIOPRINE
     Dosage: 50 MG,UNK
     Route: 048
  41. KALINOR                            /00279301/ [Suspect]
     Active Substance: CITRIC ACID MONOHYDRATE\POTASSIUM BICARBONATE\POTASSIUM CITRATE
     Indication: PRODUCT USED FOR UNKNOWN INDICATION
     Dosage: 100 MILLIGRAM, QD (100 MG, 1-0-0-0 )
     Route: 048
  42. MAGNESIUM VERLA                    /00648601/ [Suspect]
     Active Substance: MAGNESIUM
     Dosage: UNK, QD
     Route: 048
  43. NOVALGIN (METAMIZOLE SODIUM) [Interacting]
     Active Substance: METAMIZOLE SODIUM
     Indication: PRODUCT USED FOR UNKNOWN INDICATION
     Dosage: 30 GTT DROPS, Q8H
     Route: 048
  44. NOVALGIN (METAMIZOLE SODIUM) [Interacting]
     Active Substance: METAMIZOLE SODIUM
     Dosage: UNK UNK, TID (30 TROPFEN, 1-1-1-0)
     Route: 048
  45. MAGNESIUM VERLA /02089401/ [Interacting]
     Active Substance: MAGNESIUM
     Dosage: 1 DF, QD
     Route: 048
  46. URSOFALK [Interacting]
     Active Substance: URSODIOL
     Dosage: 500 MG, BID (1-0-1-0)
     Route: 048
  47. NOVALGIN                           /00169801/ [Interacting]
     Active Substance: ACETAMINOPHEN\CAFFEINE\PROPYPHENAZONE
     Dosage: 30 GTT, TID (30 TROPFEN, 1-1-1-0)
     Route: 048
  48. SPIRONOLACTON [Interacting]
     Active Substance: SPIRONOLACTONE
     Dosage: 2 DF, QD
     Route: 048
  49. VIANI [Interacting]
     Active Substance: FLUTICASONE PROPIONATE\SALMETEROL XINAFOATE
     Dosage: 1 DOSAGE FORM, QD
     Route: 055
  50. LACTULOSE AL [Interacting]
     Active Substance: LACTULOSE
     Indication: PRODUCT USED FOR UNKNOWN INDICATION
     Dosage: UNK, QD, (1 MESSBECHER, 0-0-1-0)
     Route: 048
  51. LACTULOSE AL [Interacting]
     Active Substance: LACTULOSE
     Dosage: 1 OT, QD
     Route: 048
  52. LEVOPAR [Interacting]
     Active Substance: BENSERAZIDE\LEVODOPA
     Dosage: 100 MG, BID
     Route: 048
  53. MAGNESIUM VERLA                    /00648601/ [Suspect]
     Active Substance: MAGNESIUM
     Dosage: UNK, BID
     Route: 048
  54. PARACETAMOL W/PENTAZOCINE          /00642701/ [Suspect]
     Active Substance: ACETAMINOPHEN\PENTAZOCINE HYDROCHLORIDE
     Indication: PRODUCT USED FOR UNKNOWN INDICATION
     Dosage: 90 DF, QD, UNIT DOSE: 30 DROPS
     Route: 048
  55. MAGNESIUM VERLA /01486818/ [Suspect]
     Active Substance: MAGNESIUM ASPARTATE ANHYDROUS
     Indication: PRODUCT USED FOR UNKNOWN INDICATION
     Dosage: UNK, QD
     Route: 048
  56. MAGNESIUM CITRATE/MAGNESIUM GLUTAMATE [Interacting]
     Active Substance: MAGNESIUM
     Indication: PRODUCT USED FOR UNKNOWN INDICATION
     Dosage: 2-0-0-0
     Route: 048
  57. DUROGESIC [Interacting]
     Active Substance: FENTANYL
     Indication: PRODUCT USED FOR UNKNOWN INDICATION
     Dosage: 50 UG, QD
     Route: 048
  58. SPIRONOLACTON [Interacting]
     Active Substance: SPIRONOLACTONE
     Indication: PRODUCT USED FOR UNKNOWN INDICATION
     Dosage: 100 MG, BID, (2-0-0-0)
     Route: 048
  59. VIANI [Interacting]
     Active Substance: FLUTICASONE PROPIONATE\SALMETEROL XINAFOATE
     Dosage: 50|500 ?G,( 1-0-1-0)
     Route: 055
  60. VIANI [Interacting]
     Active Substance: FLUTICASONE PROPIONATE\SALMETEROL XINAFOATE
     Dosage: 1 DOSAGE FORM, QD
     Route: 055
  61. VIGANTOLETTEN [Interacting]
     Active Substance: CHOLECALCIFEROL
     Dosage: 100 UNK, QD
     Route: 048
  62. DIPYRONE [Interacting]
     Active Substance: DIPYRONE
     Indication: PRODUCT USED FOR UNKNOWN INDICATION
     Dosage: 30 OT, TID (30 TROPFEN, 1-1-1-0)
     Route: 048
  63. BENSERAZIDE W/LEVODOPA [Interacting]
     Active Substance: BENSERAZIDE\LEVODOPA
     Indication: PRODUCT USED FOR UNKNOWN INDICATION
     Dosage: 100 MG, UNK (1-0-2.5-0)
     Route: 048
  64. MAGNESIUM VERLA                    /02089401/ [Interacting]
     Active Substance: MAGNESIUM
     Dosage: UNK, BID
     Route: 048
  65. SIMVASTATIN. [Suspect]
     Active Substance: SIMVASTATIN
     Indication: PRODUCT USED FOR UNKNOWN INDICATION
     Dosage: 40 MG, QD,  (0-0-1-0)
     Route: 048
  66. SPIRONOLACTON [Interacting]
     Active Substance: SPIRONOLACTONE
     Dosage: 100 MILLIGRAM, QD
     Route: 048
  67. VIANI [Interacting]
     Active Substance: FLUTICASONE PROPIONATE\SALMETEROL XINAFOATE
     Dosage: 2 DOSAGE FORM, QD (2 DF, QD, 50|500 ?G,)
     Route: 055
  68. VIANI [Interacting]
     Active Substance: FLUTICASONE PROPIONATE\SALMETEROL XINAFOATE
     Dosage: 1 OT, QD
     Route: 055
  69. LACTULOSE AL [Interacting]
     Active Substance: LACTULOSE
     Dosage: 1 DOSAGE FORM, QD
     Route: 048
  70. SPIRIVA [Interacting]
     Active Substance: TIOTROPIUM BROMIDE MONOHYDRATE
     Dosage: 18 UG, BID (36 UG, 1-0-1-0)
     Route: 055
  71. LEVOPAR [Interacting]
     Active Substance: BENSERAZIDE\LEVODOPA
     Indication: PRODUCT USED FOR UNKNOWN INDICATION
     Dosage: 100 MG, QD (1-0-2.5-0)
     Route: 048
  72. BENSERAZIDE HYDROCHLORIDE [Suspect]
     Active Substance: BENSERAZIDE HYDROCHLORIDE
     Indication: PRODUCT USED FOR UNKNOWN INDICATION
     Dosage: 100 MG, UNK (1-0-2.5-0) (100 MG
     Route: 048
  73. URSOFALK [Interacting]
     Active Substance: URSODIOL
     Dosage: 500 MILLIGRAM, QD
     Route: 048
  74. FUROSEMID                          /00032601/ [Interacting]
     Active Substance: FUROSEMIDE
     Dosage: 160 MILLIGRAM, QD
     Route: 048
  75. VIGANTOLETTEN [Interacting]
     Active Substance: CHOLECALCIFEROL
     Dosage: 100 INTERNATIONAL UNIT, QD (100 IE, 1-0-0-0)
     Route: 048
  76. DUROGESIC [Interacting]
     Active Substance: FENTANYL
     Indication: PRODUCT USED FOR UNKNOWN INDICATION
     Dosage: 50 ?G, UNK
     Route: 047
  77. MUCOSOLVAN [Interacting]
     Active Substance: AMBROXOL HYDROCHLORIDE
     Indication: PRODUCT USED FOR UNKNOWN INDICATION
     Dosage: 30 GTT DROPS, PRN (BEDARF)
     Route: 048
  78. ALUMINIUM HYDROXIDE W/MAGNESIUM HYDROXIDE [Suspect]
     Active Substance: ALUMINUM HYDROXIDE\MAGNESIUM HYDROXIDE
     Indication: PRODUCT USED FOR UNKNOWN INDICATION
     Dosage: 2 DF, QD
     Route: 048
  79. PARACETAMOL W/PENTAZOCINE          /00642701/ [Suspect]
     Active Substance: ACETAMINOPHEN\PENTAZOCINE HYDROCHLORIDE
     Dosage: 1 DF, QD
     Route: 048
  80. MAGNESIUM VERLA                    /01486818/ [Suspect]
     Active Substance: MAGNESIUM ASPARTATE ANHYDROUS
     Dosage: UNK, BID
     Route: 048
  81. POTASSIUM CHLORIDE. [Interacting]
     Active Substance: POTASSIUM CHLORIDE
     Indication: PRODUCT USED FOR UNKNOWN INDICATION
     Dosage: 100 MG,QD
     Route: 048

REACTIONS (4)
  - Drug interaction [Unknown]
  - Intentional product misuse [Unknown]
  - General physical health deterioration [Unknown]
  - Product prescribing error [Unknown]

NARRATIVE: CASE EVENT DATE: 20150916
